FAERS Safety Report 24595355 (Version 6)
Quarter: 2025Q1

REPORT INFORMATION
  Report Type: Report from Study
  Country: US (occurrence: US)
  Receive Date: 20241109
  Receipt Date: 20250225
  Transmission Date: 20250408
  Serious: Yes (Life-Threatening, Hospitalization, Other)
  Sender: ABBVIE
  Company Number: US-ABBVIE-5991968

PATIENT
  Age: 68 Year
  Sex: Female
  Weight: 107 kg

DRUGS (7)
  1. ARMOUR THYROID [Suspect]
     Active Substance: THYROID, PORCINE
     Indication: Hypothyroidism
     Dosage: 120 MILLIGRAMS AND 30 MILLIGRAMS
     Route: 048
     Dates: start: 1980
  2. ARMOUR THYROID [Suspect]
     Active Substance: THYROID, PORCINE
     Indication: Hypothyroidism
     Dosage: STRENGTH: 30 MG
     Route: 048
     Dates: start: 20220406, end: 20241223
  3. ARMOUR THYROID [Suspect]
     Active Substance: THYROID, PORCINE
     Indication: Hypothyroidism
     Dosage: STRENGTH: 120 MG
     Route: 048
     Dates: start: 20220406, end: 20241223
  4. SYNTHROID [Suspect]
     Active Substance: LEVOTHYROXINE SODIUM
     Indication: Hypothyroidism
     Dosage: DOSAGE: {DF}
     Route: 048
     Dates: start: 1980, end: 1980
  5. CYTOMEL [Suspect]
     Active Substance: LIOTHYRONINE SODIUM
     Indication: Product used for unknown indication
     Route: 065
  6. VALACYCLOVIR [Concomitant]
     Active Substance: VALACYCLOVIR HYDROCHLORIDE
     Indication: Herpes simplex
     Route: 048
  7. SUMATRIPTAN [Concomitant]
     Active Substance: SUMATRIPTAN
     Indication: Migraine
     Route: 048

REACTIONS (13)
  - Anaphylactic reaction [Unknown]
  - Peripheral swelling [Not Recovered/Not Resolved]
  - Dysgraphia [Not Recovered/Not Resolved]
  - Oxygen therapy [Not Recovered/Not Resolved]
  - Spinal operation [Unknown]
  - Swelling [Recovered/Resolved]
  - Thrombosis [Recovered/Resolved]
  - Spinal fracture [Recovered/Resolved]
  - Fluid retention [Recovered/Resolved]
  - Gait disturbance [Not Recovered/Not Resolved]
  - Hypersensitivity [Recovered/Resolved]
  - Osteoporosis [Not Recovered/Not Resolved]
  - Swollen tongue [Unknown]

NARRATIVE: CASE EVENT DATE: 19800801
